FAERS Safety Report 7002098-3 (Version None)
Quarter: 2010Q3

REPORT INFORMATION
  Report Type: 
  Country: None (occurrence: None)
  Receive Date: 20100920
  Receipt Date: 20071008
  Transmission Date: 20110219
  Serious: Yes (Other)
  Sender: FDA-Public Use
  Company Number: US-ASTRAZENECA-2006UW22408

PATIENT
  Age: 404 Month
  Sex: Female
  Weight: 93 kg

DRUGS (10)
  1. SEROQUEL [Suspect]
     Indication: DEPRESSION
     Dosage: 25-400 MG
     Route: 048
     Dates: start: 20020207
  2. SEROQUEL [Suspect]
     Route: 048
  3. ABILIFY [Concomitant]
     Dates: start: 20060301
  4. PAXIL [Concomitant]
     Route: 048
     Dates: start: 20010102
  5. LIPITOR [Concomitant]
     Route: 048
     Dates: start: 20021218
  6. COMBIVIR [Concomitant]
     Dosage: TWO TIMES A DAY
     Route: 048
     Dates: start: 20010124
  7. SUSTIVA [Concomitant]
     Route: 048
  8. KLONOPIN [Concomitant]
     Route: 048
     Dates: start: 20010102
  9. AMITRIPTYLINE HCL [Concomitant]
     Route: 048
     Dates: start: 20010102
  10. NEURONTIN [Concomitant]
     Indication: BACK PAIN
     Route: 048
     Dates: start: 20010102, end: 20030907

REACTIONS (3)
  - DIABETES MELLITUS [None]
  - DIABETIC KETOACIDOSIS [None]
  - INSULIN-REQUIRING TYPE 2 DIABETES MELLITUS [None]
